FAERS Safety Report 21274597 (Version 1)
Quarter: 2022Q3

REPORT INFORMATION
  Report Type: Report from Study
  Country: FR (occurrence: FR)
  Receive Date: 20220831
  Receipt Date: 20220831
  Transmission Date: 20221027
  Serious: Yes (Hospitalization)
  Sender: FDA-Public Use
  Company Number: FR-PFIZER INC-PV202200049551

PATIENT
  Age: 82 Year
  Sex: Female
  Weight: 75 kg

DRUGS (2)
  1. IBRANCE [Suspect]
     Active Substance: PALBOCICLIB
     Dosage: 100 MG, 3 WEEKS ON 1 WEEK OFF
     Dates: start: 20191021, end: 20201201
  2. FEMARA [Concomitant]
     Active Substance: LETROZOLE
     Indication: Breast cancer
     Dosage: UNK
     Route: 030
     Dates: start: 20191021, end: 20191201

REACTIONS (2)
  - Dyspnoea [Unknown]
  - Dyspnoea [Recovered/Resolved]

NARRATIVE: CASE EVENT DATE: 20200116
